FAERS Safety Report 12955027 (Version 1)
Quarter: 2016Q4

REPORT INFORMATION
  Report Type: Spontaneous
  Country: CA (occurrence: CA)
  Receive Date: 20161118
  Receipt Date: 20161118
  Transmission Date: 20170207
  Serious: Yes (Death, Other)
  Sender: FDA-Public Use
  Company Number: CA-JNJFOC-20161112454

PATIENT
  Sex: Male

DRUGS (3)
  1. ABIRATERONE ACETATE [Suspect]
     Active Substance: ABIRATERONE ACETATE
     Indication: PROSTATE CANCER METASTATIC
     Dosage: 50KBQ/KG
     Route: 048
  2. ENZALUTAMIDE [Suspect]
     Active Substance: ENZALUTAMIDE
     Indication: PROSTATE CANCER METASTATIC
     Route: 065
  3. RADIUM RA 223 DICHLORIDE [Suspect]
     Active Substance: RADIUM RA-223 DICHLORIDE
     Indication: PROSTATE CANCER METASTATIC
     Route: 042

REACTIONS (37)
  - Acute kidney injury [Unknown]
  - Thrombocytopenia [Unknown]
  - Leukopenia [Unknown]
  - Diarrhoea [Unknown]
  - Fatigue [Unknown]
  - Back pain [Unknown]
  - Device related infection [Unknown]
  - Decreased appetite [Unknown]
  - Septic shock [Fatal]
  - Pancytopenia [Unknown]
  - Pain [Unknown]
  - Bone marrow failure [Unknown]
  - Sepsis [Unknown]
  - Migraine [Unknown]
  - Hypotension [Unknown]
  - Gastrointestinal perforation [Fatal]
  - Abscess limb [Fatal]
  - Neutropenia [Unknown]
  - Asthenia [Unknown]
  - Gastric haemorrhage [Unknown]
  - Osteonecrosis of jaw [Unknown]
  - Bone pain [Unknown]
  - General physical health deterioration [Unknown]
  - Hypophosphataemia [Unknown]
  - Cerebrovascular accident [Unknown]
  - Pneumonitis [Unknown]
  - Anaemia [Unknown]
  - Constipation [Unknown]
  - Nausea [Unknown]
  - Dehydration [Unknown]
  - Dizziness [Unknown]
  - Adverse event [Unknown]
  - Weight decreased [Unknown]
  - Spinal cord compression [Unknown]
  - Vomiting [Unknown]
  - Intestinal perforation [Unknown]
  - Pain in extremity [Unknown]
